APPROVED DRUG PRODUCT: LACOSAMIDE
Active Ingredient: LACOSAMIDE
Strength: 100MG
Dosage Form/Route: TABLET;ORAL
Application: A205011 | Product #002
Applicant: ACCORD HEALTHCARE INC
Approved: Jul 12, 2022 | RLD: No | RS: No | Type: DISCN